FAERS Safety Report 23500722 (Version 5)
Quarter: 2024Q1

REPORT INFORMATION
  Report Type: Spontaneous
  Country: CZ (occurrence: CZ)
  Receive Date: 20240208
  Receipt Date: 20240228
  Transmission Date: 20240409
  Serious: Yes (Other)
  Sender: FDA-Public Use
  Company Number: CZ-MYLANLABS-2024M1009514

PATIENT
  Age: 61 Year
  Sex: Male

DRUGS (9)
  1. VORICONAZOLE [Suspect]
     Active Substance: VORICONAZOLE
     Indication: Meningitis aspergillus
     Dosage: 200 MILLIGRAM, BID
     Route: 048
     Dates: start: 2022, end: 2022
  2. VORICONAZOLE [Suspect]
     Active Substance: VORICONAZOLE
     Indication: Aspergillus infection
     Dosage: 400 MILLIGRAM, BID
     Route: 048
     Dates: start: 2022, end: 2022
  3. VORICONAZOLE [Suspect]
     Active Substance: VORICONAZOLE
     Dosage: 200 MILLIGRAM, BID (200 MG EVERY 12 HOURS ADMINISTERED ORALLY)
     Route: 048
     Dates: start: 202204, end: 202205
  4. VORICONAZOLE [Suspect]
     Active Substance: VORICONAZOLE
     Dosage: 800 MILLIGRAM, QD
     Route: 048
     Dates: start: 202205
  5. VORICONAZOLE [Suspect]
     Active Substance: VORICONAZOLE
     Indication: Meningitis aspergillus
     Dosage: 16 DAYS OF INTRAVENOUS VORICONAZOLE THERAPY
     Route: 042
     Dates: start: 202204
  6. VORICONAZOLE [Suspect]
     Active Substance: VORICONAZOLE
     Indication: Aspergillus infection
  7. LEUPROLIDE ACETATE [Concomitant]
     Active Substance: ISOPROPYL ALCOHOL\LEUPROLIDE ACETATE
     Indication: Prostate cancer
     Dosage: UNK
     Route: 065
  8. MEROPENEM [Concomitant]
     Active Substance: MEROPENEM
     Indication: Antibiotic therapy
     Dosage: UNK
     Route: 065
     Dates: start: 202204
  9. MEROPENEM [Concomitant]
     Active Substance: MEROPENEM
     Indication: Meningitis aspergillus

REACTIONS (5)
  - Dermatitis bullous [Unknown]
  - Bicytopenia [Unknown]
  - Drug intolerance [Unknown]
  - Photosensitivity reaction [Unknown]
  - Pyrexia [Unknown]

NARRATIVE: CASE EVENT DATE: 20220501
